FAERS Safety Report 9353741 (Version 1)
Quarter: 2013Q2

REPORT INFORMATION
  Report Type: Spontaneous
  Country: DE (occurrence: DE)
  Receive Date: 20130618
  Receipt Date: 20130618
  Transmission Date: 20140414
  Serious: Yes (Hospitalization, Disabling)
  Sender: FDA-Public Use
  Company Number: DE-CELGENEUS-062-20785-13050735

PATIENT
  Age: 74 Year
  Sex: Female
  Weight: 60 kg

DRUGS (1)
  1. THALIDOMIDE CELGENE [Suspect]
     Indication: PLASMA CELL MYELOMA
     Route: 048
     Dates: start: 200807, end: 201211

REACTIONS (4)
  - Neuropathy peripheral [Unknown]
  - Speech disorder [Unknown]
  - Gastric disorder [Unknown]
  - Anxiety [Unknown]
